FAERS Safety Report 8505723-0 (Version None)
Quarter: 2012Q3

REPORT INFORMATION
  Report Type: 
  Country: None (occurrence: None)
  Receive Date: 20120712
  Receipt Date: 20120709
  Transmission Date: 20120928
  Serious: Yes (Hospitalization)
  Sender: FDA-Public Use
  Company Number: JP-009507513-1207JPN000142

PATIENT

DRUGS (5)
  1. TELAPREVIR [Suspect]
     Indication: HEPATITIS C
     Dosage: 2250 MG, ONCE
     Route: 048
     Dates: start: 20120605
  2. PEG-INTRON [Suspect]
     Dosage: UNK
     Dates: start: 20120605, end: 20120622
  3. PEG-INTRON [Suspect]
     Route: 058
     Dates: start: 20120605, end: 20120622
  4. PEG-INTRON [Suspect]
     Dosage: UNK
     Dates: start: 20120624
  5. TELAPREVIR [Suspect]
     Dosage: 1500 MG, ONCE
     Route: 048
     Dates: start: 20120618, end: 20120622

REACTIONS (1)
  - PANCREATITIS ACUTE [None]
